FAERS Safety Report 21199770 (Version 1)
Quarter: 2022Q3

REPORT INFORMATION
  Report Type: Report from Study
  Country: CN (occurrence: CN)
  Receive Date: 20220811
  Receipt Date: 20220811
  Transmission Date: 20221027
  Serious: No
  Sender: FDA-Public Use
  Company Number: CN-BAXTER-2021BAX020495

PATIENT
  Age: 65 Year
  Sex: Male
  Weight: 49 kg

DRUGS (30)
  1. AMINO ACIDS\DEXTROSE\ELECTROLYTES NOS\SOYBEAN OIL [Suspect]
     Active Substance: AMINO ACIDS\DEXTROSE\ELECTROLYTES NOS\SOYBEAN OIL
     Dosage: 1500 ML ONCE, AT AN INFUSION RATE OF 2.00 ML/KG/H
     Route: 065
     Dates: start: 20210702, end: 20210703
  2. DEXTROSE [Concomitant]
     Active Substance: DEXTROSE
     Indication: Nutritional supplementation
     Dosage: 140 ML, ONCE DAILY, ROUTE:PERIPHERAL VEIN/ CENTRAL VEIN
     Route: 042
     Dates: start: 20210701, end: 20210705
  3. ALBUMIN HUMAN [Concomitant]
     Active Substance: ALBUMIN HUMAN
     Indication: Nutritional supplementation
     Dosage: 20 G, ONCE DAILY, ROUTE:PERIPHERAL VEIN/ CENTRAL VEIN
     Route: 042
     Dates: start: 20210703, end: 20210705
  4. ACETYLCYSTEINE [Concomitant]
     Active Substance: ACETYLCYSTEINE
     Indication: Prophylaxis
     Dosage: 0.3 G, TWICE DAILY
     Dates: start: 20210703, end: 20210704
  5. OMEPRAZOLE SODIUM [Concomitant]
     Active Substance: OMEPRAZOLE SODIUM
     Indication: Prophylaxis
     Dosage: 40 MG, ONCE DAILY, ROUTE: PERIPHERAL VEIN/CENTRAL VEIN
     Route: 042
     Dates: start: 20210629
  6. METRONIDAZOLE [Concomitant]
     Active Substance: METRONIDAZOLE
     Indication: Infection prophylaxis
     Dosage: 0.4 G, THREE TIMES DAILY
     Route: 048
     Dates: start: 20210701, end: 20210701
  7. ALANYL GLUTAMINE [Concomitant]
     Active Substance: ALANYL GLUTAMINE
     Indication: Nutritional supplementation
     Dosage: 100 ML, ONCE DAILY, ROUTE: PERIPHERAL VEIN/ CENTRAL VEIN
     Route: 042
     Dates: start: 20210702, end: 20210705
  8. ALANYL GLUTAMINE [Concomitant]
     Active Substance: ALANYL GLUTAMINE
     Indication: Drug therapy
     Dosage: 20 G, ONCE DAILY, ROUTE: PERIPHERAL VEIN/CENTRAL VEIN
     Route: 042
     Dates: start: 20210703, end: 20210705
  9. ALANYL GLUTAMINE [Concomitant]
     Active Substance: ALANYL GLUTAMINE
     Dosage: 20 G
     Dates: start: 20210702, end: 20210703
  10. SUFENTANIL CITRATE [Concomitant]
     Active Substance: SUFENTANIL CITRATE
     Indication: Postoperative analgesia
     Dosage: 3 UG, AS NEEDED, INFUSION PUMP CONTINUES TO PUMP
     Route: 050
     Dates: start: 20210703, end: 20210703
  11. BUTORPHANOL TARTRATE [Concomitant]
     Active Substance: BUTORPHANOL TARTRATE
     Indication: Procedural pain
     Dosage: 4 MG, AS NEEDED, ROUTE: PERIPHERAL VEIN/CENTRAL VEIN
     Route: 042
     Dates: start: 20210703, end: 20210703
  12. SODIUM CHLORIDE [Concomitant]
     Active Substance: SODIUM CHLORIDE
     Indication: Nutritional supplementation
     Dosage: 30 ML ONCE DAILY, ROUTE: PERIPHERAL VEIN/CENTRAL VEIN
     Route: 042
     Dates: start: 20210629, end: 20210705
  13. SODIUM CHLORIDE [Concomitant]
     Active Substance: SODIUM CHLORIDE
     Dosage: 40 ML ONCE DAILY, CONCENTRATED SODIUM CHLORIDE, ROUTE: PERIPHERAL VEIN/CENTRAL VEIN
     Route: 042
     Dates: start: 20210701, end: 20210705
  14. MIDAZOLAM [Concomitant]
     Active Substance: MIDAZOLAM
     Indication: Sedative therapy
     Dosage: 2 MG, ONCE DAILY, ROUTE: PERIPHERAL VEIN/CENTRAL VEIN
     Route: 042
     Dates: start: 20210703, end: 20210703
  15. VITAMINS [Concomitant]
     Active Substance: VITAMINS
     Indication: Drug therapy
     Dosage: 10 MG
     Route: 065
     Dates: start: 20210702, end: 20210703
  16. UNSPECIFIED INGREDIENT [Concomitant]
     Active Substance: UNSPECIFIED INGREDIENT
     Indication: Drug therapy
     Dosage: 10 ML
     Route: 065
     Dates: start: 20210702, end: 20210703
  17. INSULIN NOS [Concomitant]
     Active Substance: INSULIN NOS
     Indication: Drug therapy
     Dosage: 28U, ONCE DAILY, ROUTE: PERIPHERAL VEIN/CENTRAL VEIN
     Route: 042
     Dates: start: 20210701, end: 20210705
  18. INSULIN NOS [Concomitant]
     Active Substance: INSULIN NOS
     Indication: Prophylaxis
     Dosage: 15 U
     Route: 065
     Dates: start: 20210702, end: 20210703
  19. INSULIN NOS [Concomitant]
     Active Substance: INSULIN NOS
     Indication: Thrombosis prophylaxis
     Dosage: 4100 IU AS NEEDED
     Route: 058
     Dates: start: 20210703
  20. VITAMIN B6 [Concomitant]
     Active Substance: PYRIDOXINE HYDROCHLORIDE
     Indication: Nutritional supplementation
     Dosage: ONCE DAILY
     Route: 065
     Dates: start: 20210629, end: 20210701
  21. VITAMIN C [Concomitant]
     Active Substance: ASCORBIC ACID
     Indication: Nutritional supplementation
     Dosage: 2.0 G, ONCE DAILY, ROUTE: PERIPHERAL VEIN/CENTRAL VEIN
     Route: 042
     Dates: start: 20210629, end: 20210629
  22. VITAMINS [Concomitant]
     Active Substance: VITAMINS
     Indication: Nutritional supplementation
     Dosage: ONCE DAILY
     Route: 065
     Dates: start: 20210703, end: 20210705
  23. REMIFENTANIL HYDROCHLORIDE [Concomitant]
     Active Substance: REMIFENTANIL HYDROCHLORIDE
     Indication: Procedural pain
     Dosage: 0.04 MG, AS NEEDED, ROUTE: PERIPHERAL VEIN/CENTRAL VEIN
     Route: 042
     Dates: start: 20210703, end: 20210703
  24. LEVALBUTEROL HYDROCHLORIDE [Concomitant]
     Active Substance: LEVALBUTEROL HYDROCHLORIDE
     Indication: Prophylaxis
     Dosage: 2 ML, TWICE DAILY, AEROSOL INHALATION SOLUTION, ROUTE: ORAL INHALATION
     Route: 048
     Dates: start: 20210703, end: 20210704
  25. TOAD VENOM [Concomitant]
     Indication: Adenocarcinoma of colon
     Dosage: 10 ML, ONCE DAILY, ROUTE: PERIPHERAL VEIN/CENTRAL VEIN
     Route: 042
     Dates: start: 20210630, end: 20210701
  26. IOHEXOL [Concomitant]
     Active Substance: IOHEXOL
     Indication: Scan with contrast
     Dosage: 35 G AS NEEDED, ROUTE: PERIPHERAL VEIN/CENTRAL VEIN
     Route: 042
     Dates: start: 20210629, end: 20210629
  27. POLYETHYLENE GLYCOL COMPOUND [Concomitant]
     Indication: Colonic lavage
     Dosage: 60 G, AS NEEDED, ELECTROLYTE POWDER
     Route: 048
     Dates: start: 20210701, end: 20210701
  28. CALCIUM;GLUCOSE [Concomitant]
     Indication: Nutritional supplementation
     Dosage: 500 ML, ONCE DAILY, ROUTE: PERIPHERAL VEIN/CENTRAL VEIN
     Route: 042
     Dates: start: 20210702, end: 20210702
  29. AMINO ACIDS, SOURCE UNSPECIFIED [Concomitant]
     Active Substance: AMINO ACIDS, SOURCE UNSPECIFIED
     Indication: Nutritional supplementation
     Dosage: 28.5 G, ONCE DAILY, ROUTE: PERIPHERAL VEIN/CENTRAL VEIN
     Route: 042
     Dates: start: 20210629, end: 20210705
  30. VITAMINS [Concomitant]
     Active Substance: VITAMINS
     Indication: Nutritional supplementation
     Dosage: 5 ML, ONCE DAILY, ROUTE: PERIPHERAL VEIN/CENTRAL VEIN
     Route: 042
     Dates: start: 20210702, end: 20210702

REACTIONS (1)
  - Pyrexia [Recovered/Resolved]

NARRATIVE: CASE EVENT DATE: 20210704
